FAERS Safety Report 11229210 (Version 1)
Quarter: 2015Q2

REPORT INFORMATION
  Report Type: Spontaneous
  Country: US (occurrence: US)
  Receive Date: 20150630
  Receipt Date: 20150630
  Transmission Date: 20150821
  Serious: No
  Sender: FDA-Public Use
  Company Number: US-TEVA-571708USA

PATIENT
  Sex: Female

DRUGS (3)
  1. VALIUM [Concomitant]
     Active Substance: DIAZEPAM
  2. FENTANYL. [Concomitant]
     Active Substance: FENTANYL
     Route: 062
  3. ACTIQ [Suspect]
     Active Substance: FENTANYL CITRATE
     Indication: PAIN
     Dosage: 600 MCG UP TO 13 TIMES A DAY
     Route: 048
     Dates: start: 200307

REACTIONS (1)
  - Incorrect drug administration duration [Unknown]
